FAERS Safety Report 4759260-X (Version None)
Quarter: 2005Q3

REPORT INFORMATION
  Report Type: 
  Country: None (occurrence: None)
  Receive Date: 20050901
  Receipt Date: 20050817
  Transmission Date: 20060218
  Serious: Yes (Hospitalization)
  Sender: FDA-Public Use
  Company Number: US-AMGEN-KDL146813

PATIENT
  Sex: Female

DRUGS (3)
  1. ENBREL [Suspect]
     Indication: RHEUMATOID ARTHRITIS
     Dates: start: 20000701, end: 20050807
  2. METHOTREXATE [Concomitant]
     Route: 065
     Dates: start: 20000701, end: 20050807
  3. PLAQUENIL [Concomitant]
     Route: 065

REACTIONS (4)
  - DECREASED APPETITE [None]
  - FATIGUE [None]
  - GRANULOMA [None]
  - PYREXIA [None]
